FAERS Safety Report 20539466 (Version 1)
Quarter: 2022Q1

REPORT INFORMATION
  Report Type: Spontaneous
  Country: CA (occurrence: CA)
  Receive Date: 20220302
  Receipt Date: 20220302
  Transmission Date: 20220423
  Serious: Yes (Other)
  Sender: FDA-Public Use
  Company Number: CA-JNJFOC-20211044748

PATIENT
  Age: 23 Year
  Sex: Male
  Weight: 65 kg

DRUGS (4)
  1. REMICADE [Suspect]
     Active Substance: INFLIXIMAB
     Indication: Uveitis
     Route: 042
  2. REMICADE [Suspect]
     Active Substance: INFLIXIMAB
     Indication: Rheumatoid arthritis
  3. METHOTREXATE [Concomitant]
     Active Substance: METHOTREXATE
     Route: 048
  4. NAPHAZOLINE HYDROCHLORIDE [Concomitant]
     Active Substance: NAPHAZOLINE HYDROCHLORIDE
     Route: 047

REACTIONS (7)
  - Weight decreased [Unknown]
  - Weight increased [Unknown]
  - Blood pressure increased [Unknown]
  - Condition aggravated [Unknown]
  - Hypertension [Unknown]
  - Intentional product use issue [Unknown]
  - Off label use [Unknown]
